APPROVED DRUG PRODUCT: LORAZEPAM
Active Ingredient: LORAZEPAM
Strength: 2MG/ML
Dosage Form/Route: INJECTABLE;INJECTION
Application: A076150 | Product #001 | TE Code: AP
Applicant: INTERNATIONAL MEDICATION SYSTEMS LTD
Approved: Nov 15, 2004 | RLD: No | RS: No | Type: RX